FAERS Safety Report 6267510-6 (Version None)
Quarter: 2009Q3

REPORT INFORMATION
  Report Type: 
  Country: None (occurrence: None)
  Receive Date: 20090714
  Receipt Date: 20090708
  Transmission Date: 20100115
  Serious: Yes (Life-Threatening)
  Sender: FDA-Public Use
  Company Number: GB-MERCK-0906GBR00091

PATIENT
  Age: 37 Year
  Sex: Male
  Weight: 104 kg

DRUGS (3)
  1. SINGULAIR [Suspect]
     Indication: ASTHMA
     Route: 048
     Dates: start: 20090501, end: 20090501
  2. ALBUTEROL SULFATE [Concomitant]
     Indication: ASTHMA
     Route: 065
  3. BUDESONIDE AND FORMOTEROL FUMARATE [Concomitant]
     Indication: ASTHMA
     Route: 065

REACTIONS (1)
  - ANAPHYLACTIC SHOCK [None]
